FAERS Safety Report 23487920 (Version 2)
Quarter: 2024Q1

REPORT INFORMATION
  Report Type: Report from Study
  Country: BR (occurrence: BR)
  Receive Date: 20240206
  Receipt Date: 20240208
  Transmission Date: 20240409
  Serious: Yes (Life-Threatening, Hospitalization, Other)
  Sender: FDA-Public Use
  Company Number: BR-AstraZeneca-2024A028058

PATIENT
  Age: 166 Day
  Sex: Female
  Weight: 5.5 kg

DRUGS (5)
  1. SYNAGIS [Suspect]
     Active Substance: PALIVIZUMAB
     Indication: Respiratory syncytial virus bronchiolitis
     Route: 030
     Dates: start: 20230211
  2. SERETIDE 25/125MCG [Concomitant]
     Indication: Product used for unknown indication
  3. SERETIDE 25/125MCG [Concomitant]
  4. FLUTICASONE PROPIONATE [Concomitant]
     Active Substance: FLUTICASONE PROPIONATE
     Indication: Product used for unknown indication
  5. LOSEC [Concomitant]
     Active Substance: OMEPRAZOLE
     Indication: Gastrooesophageal reflux disease
     Route: 048

REACTIONS (10)
  - Bronchiolitis [Recovered/Resolved with Sequelae]
  - Respiratory arrest [Unknown]
  - Pulmonary fibrosis [Unknown]
  - Atelectasis [Recovered/Resolved with Sequelae]
  - Malnutrition [Unknown]
  - Weight gain poor [Unknown]
  - Anaemia [Unknown]
  - Illness [Unknown]
  - Nasopharyngitis [Unknown]
  - Feeding disorder [Unknown]

NARRATIVE: CASE EVENT DATE: 20230708
